FAERS Safety Report 8866353 (Version 1)
Quarter: 2012Q4

REPORT INFORMATION
  Report Type: 
  Country: US (occurrence: US)
  Receive Date: 20121025
  Receipt Date: 20121025
  Transmission Date: 20130627
  Serious: Yes (Hospitalization, Other)
  Sender: FDA-Public Use
  Company Number: US-BAYER-2012-109451

PATIENT
  Age: 82 Year

DRUGS (2)
  1. ALEVE CAPLET/TABLET,MIDOL EXTENDED RELIEF CAPLET [Suspect]
  2. BAYER GENUINE ASPIRIN ORIGINAL STRENGTH [Suspect]

REACTIONS (4)
  - Atrioventricular block complete [None]
  - Electrolyte imbalance [None]
  - Gastrointestinal haemorrhage [None]
  - Diarrhoea [None]
